FAERS Safety Report 5923642-0 (Version None)
Quarter: 2008Q3

REPORT INFORMATION
  Report Type: 
  Country: None (occurrence: None)
  Receive Date: 20080909
  Receipt Date: 20080222
  Transmission Date: 20090109
  Serious: Yes (Hospitalization)
  Sender: FDA-Public Use
  Company Number: 163-20785-08011312

PATIENT
  Age: 56 Year
  Sex: Male

DRUGS (7)
  1. THALOMID [Suspect]
     Indication: MULTIPLE MYELOMA
     Dosage: QD, ORAL
     Route: 048
     Dates: start: 20071226, end: 20080118
  2. DEXAMETHASONE TAB [Concomitant]
  3. ASPIRIN [Concomitant]
  4. ZOMETA [Concomitant]
  5. ATENOLOL [Concomitant]
  6. PROTONIX [Concomitant]
  7. ALBUTEROL [Concomitant]

REACTIONS (1)
  - LARGE INTESTINE PERFORATION [None]
